FAERS Safety Report 5246879-5 (Version None)
Quarter: 2007Q1

REPORT INFORMATION
  Report Type: 
  Country: None (occurrence: None)
  Receive Date: 20070226
  Receipt Date: 20070214
  Transmission Date: 20070707
  Serious: Yes (Other)
  Sender: FDA-Public Use
  Company Number: US-PFIZER INC-2007012656

PATIENT
  Sex: Male
  Weight: 84.8 kg

DRUGS (2)
  1. SUTENT [Suspect]
  2. CORTICOSTEROIDS [Concomitant]

REACTIONS (3)
  - COUGH [None]
  - DYSPNOEA [None]
  - LUNG INFILTRATION [None]
